FAERS Safety Report 8712536 (Version 2)
Quarter: 2012Q4

REPORT INFORMATION
  Report Type: 
  Country: US (occurrence: US)
  Receive Date: 20120808
  Receipt Date: 20120919
  Transmission Date: 20130627
  Serious: No
  Sender: FDA-Public Use
  Company Number: US-PFIZER INC-2012188201

PATIENT
  Age: 42 Year
  Sex: Male

DRUGS (4)
  1. VFEND [Suspect]
     Indication: BRONCHOPULMONARY ASPERGILLOSIS
     Dosage: 200 mg, 2x/day
     Route: 048
     Dates: start: 20120709, end: 20120719
  2. TRIZIVIR [Concomitant]
     Indication: ACQUIRED IMMUNODEFICIENCY SYNDROME
     Dosage: 1 DF, 2x/day
     Dates: start: 201101
  3. PREZISTA [Concomitant]
     Indication: ACQUIRED IMMUNODEFICIENCY SYNDROME
     Dosage: 600 mg, 2x/day
     Dates: start: 201112
  4. NORVIR [Concomitant]
     Indication: ACQUIRED IMMUNODEFICIENCY SYNDROME
     Dosage: 100 mg, 2x/day
     Dates: start: 201112

REACTIONS (2)
  - Drug intolerance [Unknown]
  - Dizziness [Recovered/Resolved]
